FAERS Safety Report 4412943-3 (Version None)
Quarter: 2004Q3

REPORT INFORMATION
  Report Type: 
  Country: None (occurrence: None)
  Receive Date: 20040802
  Receipt Date: 20030808
  Transmission Date: 20050211
  Serious: No
  Sender: FDA-Public Use
  Company Number: US-GLAXOSMITHKLINE-A0420174A

PATIENT
  Age: 2 Month
  Sex: Male

DRUGS (1)
  1. ZANTAC [Suspect]
     Route: 048

REACTIONS (2)
  - DIARRHOEA [None]
  - MEDICATION ERROR [None]
